FAERS Safety Report 11902586 (Version 2)
Quarter: 2016Q1

REPORT INFORMATION
  Report Type: Spontaneous
  Country: US (occurrence: US)
  Receive Date: 20160108
  Receipt Date: 20160308
  Transmission Date: 20160526
  Serious: No
  Sender: FDA-Public Use
  Company Number: US-TEVA-622205USA

PATIENT
  Age: 44 Year
  Sex: Female

DRUGS (7)
  1. TRILEPTAL [Concomitant]
     Active Substance: OXCARBAZEPINE
  2. TRILEPTAL [Concomitant]
     Active Substance: OXCARBAZEPINE
  3. PRISTIQ EXTENDED RELEASE [Concomitant]
     Active Substance: DESVENLAFAXINE SUCCINATE
  4. COPAXONE [Suspect]
     Active Substance: GLATIRAMER ACETATE
     Route: 058
     Dates: start: 201509
  5. LAMICTAL [Concomitant]
     Active Substance: LAMOTRIGINE
  6. XANAX [Concomitant]
     Active Substance: ALPRAZOLAM
  7. OXCARBAZEPIN [Concomitant]
     Active Substance: OXCARBAZEPINE

REACTIONS (4)
  - Movement disorder [Unknown]
  - Feeling cold [Unknown]
  - Abdominal discomfort [Unknown]
  - Chills [Unknown]

NARRATIVE: CASE EVENT DATE: 201512
